FAERS Safety Report 20020711 (Version 3)
Quarter: 2022Q3

REPORT INFORMATION
  Report Type: Report from Study
  Country: US (occurrence: US)
  Receive Date: 20211101
  Receipt Date: 20220714
  Transmission Date: 20221026
  Serious: Yes (Hospitalization, Other)
  Sender: FDA-Public Use
  Company Number: US-NOVARTISPH-NVSC2021US245484

PATIENT
  Sex: Male

DRUGS (1)
  1. LUTATHERA [Suspect]
     Active Substance: LUTETIUM OXODOTREOTIDE LU-177
     Indication: Paraganglion neoplasm
     Dosage: UNK (TREATED ABOUT 18 MONTHS AGO)
     Route: 042

REACTIONS (10)
  - Road traffic accident [Unknown]
  - Paraganglion neoplasm [Unknown]
  - Malignant neoplasm progression [Unknown]
  - Nephrolithiasis [Unknown]
  - Asthenia [Unknown]
  - Anaemia [Unknown]
  - Malaise [Unknown]
  - Ill-defined disorder [Unknown]
  - Product use in unapproved indication [Unknown]
  - Intentional product use issue [Unknown]
